FAERS Safety Report 17639394 (Version 1)
Quarter: 2020Q2

REPORT INFORMATION
  Report Type: Report from Study
  Country: MX (occurrence: MX)
  Receive Date: 20200407
  Receipt Date: 20200407
  Transmission Date: 20200713
  Serious: Yes (Other)
  Sender: FDA-Public Use
  Company Number: NVSC2020MX092292

PATIENT
  Age: 70 Year
  Sex: Male

DRUGS (1)
  1. EXFORGE [Suspect]
     Active Substance: AMLODIPINE BESYLATE\VALSARTAN
     Indication: RENAL DISORDER
     Dosage: 1 DF, QD
     Route: 048
     Dates: start: 201912

REACTIONS (4)
  - Hypoxia [Unknown]
  - Product use in unapproved indication [Unknown]
  - Infarction [Unknown]
  - Malaise [Unknown]

NARRATIVE: CASE EVENT DATE: 201912
